FAERS Safety Report 4531664-X (Version None)
Quarter: 2004Q4

REPORT INFORMATION
  Report Type: 
  Country: None (occurrence: None)
  Receive Date: 20041216
  Receipt Date: 20041130
  Transmission Date: 20050328
  Serious: Yes (Other)
  Sender: FDA-Public Use
  Company Number: USA041284910

PATIENT
  Age: 7 Year
  Sex: Female

DRUGS (2)
  1. STRATTERA [Suspect]
     Dosage: 40 MG
  2. TENEX [Concomitant]

REACTIONS (6)
  - COMA [None]
  - MALAISE [None]
  - MYDRIASIS [None]
  - OVERDOSE [None]
  - SOMNOLENCE [None]
  - VOMITING [None]
